FAERS Safety Report 22297081 (Version 1)
Quarter: 2023Q2

REPORT INFORMATION
  Report Type: Spontaneous
  Country: NL (occurrence: NL)
  Receive Date: 20230509
  Receipt Date: 20230509
  Transmission Date: 20230721
  Serious: Yes (Hospitalization, Other)
  Sender: FDA-Public Use
  Company Number: None

PATIENT
  Age: 69 Year
  Sex: Male

DRUGS (3)
  1. MYCOPHENOLATE MOFETIL [Interacting]
     Active Substance: MYCOPHENOLATE MOFETIL
     Indication: Prophylaxis against transplant rejection
     Dosage: 750 MG,  EVERY 12 HOUR
     Dates: start: 2015
  2. ACYCLOVIR [Interacting]
     Active Substance: ACYCLOVIR
     Indication: Meningoencephalitis herpetic
     Dosage: 500 MG, 2 TIMES PER DAY
     Dates: start: 2021
  3. ACYCLOVIR [Interacting]
     Active Substance: ACYCLOVIR
     Dosage: 400 MG, 2 TIMES PER DAY
     Dates: start: 2021

REACTIONS (4)
  - Confusional state [Unknown]
  - Drug interaction [Recovered/Resolved]
  - Myoclonus [Recovered/Resolved]
  - Antiviral drug level above therapeutic [Recovered/Resolved]

NARRATIVE: CASE EVENT DATE: 20210101
